FAERS Safety Report 16779972 (Version 1)
Quarter: 2019Q3

REPORT INFORMATION
  Report Type: Spontaneous
  Country: ES (occurrence: ES)
  Receive Date: 20190906
  Receipt Date: 20190906
  Transmission Date: 20191005
  Serious: Yes (Hospitalization)
  Sender: FDA-Public Use
  Company Number: PHHY2019ES203867

PATIENT
  Age: 51 Year
  Sex: Male

DRUGS (1)
  1. RIFAMPICIN [Suspect]
     Active Substance: RIFAMPIN
     Indication: PULMONARY TUBERCULOSIS
     Dosage: UNK
     Route: 065

REACTIONS (8)
  - Leukocytosis [Recovering/Resolving]
  - Acute kidney injury [Recovering/Resolving]
  - Vomiting [Recovering/Resolving]
  - Leukocyturia [Recovering/Resolving]
  - Pyrexia [Recovering/Resolving]
  - Metabolic acidosis [Recovering/Resolving]
  - Nausea [Recovering/Resolving]
  - Anuria [Recovering/Resolving]
